FAERS Safety Report 4707003-8 (Version None)
Quarter: 2005Q3

REPORT INFORMATION
  Report Type: 
  Country: None (occurrence: None)
  Receive Date: 20050701
  Receipt Date: 20050620
  Transmission Date: 20060218
  Serious: Yes (Death, Hospitalization)
  Sender: FDA-Public Use
  Company Number: 2005BI011742

PATIENT
  Age: 81 Year
  Sex: Male
  Weight: 64.2 kg

DRUGS (18)
  1. ZEVALIN [Suspect]
     Indication: NON-HODGKIN'S LYMPHOMA
     Dosage: SEE IMAGE
     Route: 042
     Dates: start: 20050308, end: 20050308
  2. ZEVALIN [Suspect]
     Indication: NON-HODGKIN'S LYMPHOMA
     Dosage: SEE IMAGE
     Route: 042
     Dates: start: 20050308, end: 20050308
  3. ZEVALIN [Suspect]
     Indication: NON-HODGKIN'S LYMPHOMA
     Dosage: SEE IMAGE
     Route: 042
     Dates: start: 20050315, end: 20050315
  4. ZEVALIN [Suspect]
     Indication: NON-HODGKIN'S LYMPHOMA
     Dosage: SEE IMAGE
     Route: 042
     Dates: start: 20050315, end: 20050315
  5. TOPROL-XL [Concomitant]
  6. ZANTAC [Concomitant]
  7. IMDUR [Concomitant]
  8. LISINOPRIL [Concomitant]
  9. FLUOXETINE [Concomitant]
  10. KEPPRA [Concomitant]
  11. NITROGLYCERIN [Concomitant]
  12. ASPIRIN [Concomitant]
  13. MEVCOR [Concomitant]
  14. HYDROCHLOROTHIAZIDE [Concomitant]
  15. PROAZAC [Concomitant]
  16. MEGACE [Concomitant]
  17. ULTRAM [Concomitant]
  18. TYLENOL [Concomitant]

REACTIONS (8)
  - ARTHRALGIA [None]
  - BACK PAIN [None]
  - DISEASE PROGRESSION [None]
  - FATIGUE [None]
  - GENERAL PHYSICAL HEALTH DETERIORATION [None]
  - MALNUTRITION [None]
  - ORAL INTAKE REDUCED [None]
  - OSTEOARTHRITIS [None]
